FAERS Safety Report 8314085-3 (Version None)
Quarter: 2012Q2

REPORT INFORMATION
  Report Type: 
  Country: None (occurrence: None)
  Receive Date: 20120426
  Receipt Date: 20120423
  Transmission Date: 20120825
  Serious: Yes (Death)
  Sender: FDA-Public Use
  Company Number: US-CELGENEUS-163-21880-12042409

PATIENT
  Sex: Female

DRUGS (6)
  1. REVLIMID [Suspect]
     Indication: MULTIPLE MYELOMA
     Dosage: 10 MILLIGRAM
     Route: 048
     Dates: start: 20100514
  2. METFORMIN HCL [Concomitant]
     Dosage: 500 MILLIGRAM
     Route: 065
  3. TEMAZEPAM [Concomitant]
     Route: 065
  4. KLOR-CON M10 [Concomitant]
     Dosage: 10 MILLIEQUIVALENTS
     Route: 065
  5. AMLODIPINE [Concomitant]
     Dosage: 10 MILLIGRAM
     Route: 065
  6. GERITOL [Concomitant]
     Route: 065

REACTIONS (1)
  - DEATH [None]
